FAERS Safety Report 24943887 (Version 2)
Quarter: 2025Q1

REPORT INFORMATION
  Report Type: Spontaneous
  Country: US (occurrence: US)
  Receive Date: 20250207
  Receipt Date: 20250306
  Transmission Date: 20250408
  Serious: No
  Sender: INSUD PHARMA
  Company Number: US-INSUD PHARMA-2501US00601

PATIENT

DRUGS (2)
  1. TESTOSTERONE CYPIONATE [Suspect]
     Active Substance: TESTOSTERONE CYPIONATE
     Indication: Hypogonadism
     Dosage: ONCE EVERY 2 WEEKS
     Route: 030
     Dates: end: 20250122
  2. TESTOSTERONE CYPIONATE [Suspect]
     Active Substance: TESTOSTERONE CYPIONATE
     Dosage: ONCE EVERY TWO WEEKS
     Route: 030
     Dates: start: 2022

REACTIONS (5)
  - Road traffic accident [Recovering/Resolving]
  - Intervertebral disc disorder [Recovering/Resolving]
  - Fungal infection [Unknown]
  - Therapeutic response unexpected [Unknown]
  - Therapeutic response changed [Unknown]

NARRATIVE: CASE EVENT DATE: 20241001
